FAERS Safety Report 5934639-9 (Version None)
Quarter: 2008Q4

REPORT INFORMATION
  Report Type: 
  Country: None (occurrence: None)
  Receive Date: 20081029
  Receipt Date: 20081017
  Transmission Date: 20090506
  Serious: Yes (Life-Threatening, Other)
  Sender: FDA-Public Use
  Company Number: CN-PFIZER INC-2008088645

PATIENT
  Age: 13 Year
  Sex: Female

DRUGS (3)
  1. AZITHROMYCIN [Suspect]
     Indication: INFECTION
     Dosage: DAILY DOSE:.25GRAM
     Route: 042
     Dates: start: 20060101, end: 20060101
  2. LANATOSIDE C [Concomitant]
  3. DEXAMETHASONE [Concomitant]

REACTIONS (5)
  - ACID BASE BALANCE ABNORMAL [None]
  - ELECTROLYTE IMBALANCE [None]
  - HEPATIC ENCEPHALOPATHY [None]
  - LIVER DISORDER [None]
  - RENAL FAILURE [None]
